FAERS Safety Report 24259137 (Version 1)
Quarter: 2024Q3

REPORT INFORMATION
  Report Type: Spontaneous
  Country: CZ (occurrence: CZ)
  Receive Date: 20240828
  Receipt Date: 20240828
  Transmission Date: 20241017
  Serious: Yes (Hospitalization)
  Sender: ACCORD
  Company Number: CZ-MLMSERVICE-20240814-PI161607-00108-5

PATIENT
  Age: 62 Year
  Sex: Male

DRUGS (3)
  1. CLOZAPINE [Interacting]
     Active Substance: CLOZAPINE
     Indication: Schizoaffective disorder depressive type
  2. VENLAFAXINE [Concomitant]
     Active Substance: VENLAFAXINE HYDROCHLORIDE
  3. BISOPROLOL [Concomitant]
     Active Substance: BISOPROLOL\BISOPROLOL FUMARATE

REACTIONS (5)
  - Drug interaction [Recovered/Resolved]
  - Antipsychotic drug level below therapeutic [Unknown]
  - Schizoaffective disorder depressive type [Recovering/Resolving]
  - Tobacco interaction [Recovered/Resolved]
  - Schizophrenia [Recovering/Resolving]
